FAERS Safety Report 19845130 (Version 2)
Quarter: 2021Q4

REPORT INFORMATION
  Report Type: Report from Study
  Country: US (occurrence: US)
  Receive Date: 20210917
  Receipt Date: 20211008
  Transmission Date: 20220303
  Serious: Yes (Hospitalization, Other)
  Sender: FDA-Public Use
  Company Number: US-AMGEN-USACT2021140389

PATIENT
  Age: 12 Year
  Sex: Female
  Weight: 49.9 kg

DRUGS (4)
  1. BLINATUMOMAB [Suspect]
     Active Substance: BLINATUMOMAB
     Indication: B precursor type acute leukaemia
     Dosage: UNK (TOTAL DOSE: 604 MCG)
     Route: 065
  2. DEXAMETHASONE [Suspect]
     Active Substance: DEXAMETHASONE
     Indication: B precursor type acute leukaemia
     Dosage: UNK (TOTAL DOSE: 7.2 MG)
     Route: 065
  3. METHOTREXATE [Suspect]
     Active Substance: METHOTREXATE
     Indication: B precursor type acute leukaemia
     Dosage: UNK (TOTAL DOSE: 30 MG)
     Route: 065
  4. NIVOLUMAB [Suspect]
     Active Substance: NIVOLUMAB
     Indication: B precursor type acute leukaemia
     Dosage: UNK (TOTAL DOSE: 149.7 MG)
     Route: 065

REACTIONS (2)
  - Hypokalaemia [Recovered/Resolved]
  - Cytokine release syndrome [Recovered/Resolved]

NARRATIVE: CASE EVENT DATE: 20210409
